FAERS Safety Report 17047859 (Version 1)
Quarter: 2019Q4

REPORT INFORMATION
  Report Type: Spontaneous
  Country: JP (occurrence: JP)
  Receive Date: 20191119
  Receipt Date: 20191119
  Transmission Date: 20200122
  Serious: Yes (Death)
  Sender: FDA-Public Use
  Company Number: JP-MEDEXUS PHARMA, INC.-2019MED00262

PATIENT

DRUGS (1)
  1. METHOTREXATE. [Suspect]
     Active Substance: METHOTREXATE
     Indication: AUTOIMMUNE DISORDER
     Route: 065

REACTIONS (2)
  - Lymphoproliferative disorder [Fatal]
  - Acute myeloid leukaemia [Fatal]
